FAERS Safety Report 11244102 (Version 4)
Quarter: 2015Q4

REPORT INFORMATION
  Report Type: Other
  Country: IT (occurrence: IT)
  Receive Date: 20150707
  Receipt Date: 20151207
  Transmission Date: 20160304
  Serious: Yes (Hospitalization)
  Sender: FDA-Public Use
  Company Number: IT-MYLANLABS-2015M1022022

PATIENT

DRUGS (4)
  1. LORMETAZEPAM [Suspect]
     Active Substance: LORMETAZEPAM
     Indication: PRODUCT USED FOR UNKNOWN INDICATION
     Dosage: 1 DF TOTAL
     Route: 048
     Dates: start: 20150503, end: 20150503
  2. TRIAZOLAM. [Suspect]
     Active Substance: TRIAZOLAM
     Indication: PRODUCT USED FOR UNKNOWN INDICATION
     Dosage: 1 DF TOTAL
     Route: 048
     Dates: start: 20150503, end: 20150503
  3. DELORAZEPAM [Suspect]
     Active Substance: DELORAZEPAM
     Indication: PRODUCT USED FOR UNKNOWN INDICATION
     Dosage: 1 DF TOTAL
     Route: 048
     Dates: start: 20150503, end: 20150503
  4. ZOLPIDEM TARTRATE. [Suspect]
     Active Substance: ZOLPIDEM TARTRATE
     Indication: PRODUCT USED FOR UNKNOWN INDICATION
     Dosage: 1 DF TOTAL
     Route: 048
     Dates: start: 20150503, end: 20150503

REACTIONS (4)
  - Sopor [Recovering/Resolving]
  - Suicide attempt [Unknown]
  - Poisoning [Recovering/Resolving]
  - Intentional self-injury [Recovering/Resolving]

NARRATIVE: CASE EVENT DATE: 20150503
